FAERS Safety Report 7395528-9 (Version None)
Quarter: 2011Q2

REPORT INFORMATION
  Report Type: 
  Country: None (occurrence: None)
  Receive Date: 20110405
  Receipt Date: 20110330
  Transmission Date: 20111010
  Serious: Yes (Other)
  Sender: FDA-Public Use
  Company Number: US-ABBOTT-11P-163-0715819-00

PATIENT
  Sex: Female
  Weight: 49.94 kg

DRUGS (2)
  1. HUMIRA [Suspect]
     Indication: RHEUMATOID ARTHRITIS
     Route: 058
  2. NAPROXEN [Concomitant]
     Indication: PAIN MANAGEMENT
     Dates: start: 20110328

REACTIONS (4)
  - JOINT SWELLING [None]
  - ARTHRALGIA [None]
  - PELVIC PAIN [None]
  - INSOMNIA [None]
